FAERS Safety Report 9918152 (Version 2)
Quarter: 2014Q1

REPORT INFORMATION
  Report Type: Spontaneous
  Country: US (occurrence: US)
  Receive Date: 20140223
  Receipt Date: 20140223
  Transmission Date: 20141002
  Serious: Yes (Other)
  Sender: FDA-Public Use
  Company Number: US-ALLERGAN-1314043US

PATIENT
  Age: 56 Year
  Sex: Female

DRUGS (1)
  1. OZURDEX [Suspect]
     Indication: IRIDOCYCLITIS
     Dosage: 0.7 MG, SINGLE
     Route: 031
     Dates: start: 20130731, end: 20130731

REACTIONS (2)
  - Endophthalmitis [Not Recovered/Not Resolved]
  - Off label use [Unknown]
